FAERS Safety Report 21728031 (Version 1)
Quarter: 2022Q4

REPORT INFORMATION
  Report Type: Spontaneous
  Country: US (occurrence: US)
  Receive Date: 20221214
  Receipt Date: 20221214
  Transmission Date: 20230113
  Serious: No
  Sender: FDA-Public Use
  Company Number: US-Dermavant-000223

PATIENT
  Age: 33 Year
  Sex: Male

DRUGS (1)
  1. TAPINAROF [Suspect]
     Active Substance: TAPINAROF
     Indication: Psoriasis
     Dosage: APPLIED ONCE DAILY
     Route: 061
     Dates: start: 20221013, end: 20221018

REACTIONS (3)
  - Application site erythema [Not Recovered/Not Resolved]
  - Folliculitis [Not Recovered/Not Resolved]
  - Pruritus [Not Recovered/Not Resolved]

NARRATIVE: CASE EVENT DATE: 20221014
